FAERS Safety Report 9437937 (Version 1)
Quarter: 2013Q3

REPORT INFORMATION
  Report Type: Spontaneous
  Country: US (occurrence: US)
  Receive Date: 20130802
  Receipt Date: 20130802
  Transmission Date: 20140515
  Serious: No
  Sender: FDA-Public Use
  Company Number: US-BRISTOL-MYERS SQUIBB COMPANY-18897173

PATIENT
  Age: 67 Year
  Sex: Male
  Weight: 69.39 kg

DRUGS (12)
  1. COUMADIN [Suspect]
     Indication: COAGULOPATHY
  2. REVATIO [Suspect]
     Indication: CARDIAC DISORDER
     Dates: start: 20120911
  3. REVATIO [Suspect]
     Indication: BLOOD PRESSURE
     Dates: start: 20120911
  4. LIPITOR [Concomitant]
     Indication: BLOOD CHOLESTEROL ABNORMAL
     Dates: start: 1998
  5. NEXIUM [Concomitant]
     Indication: DYSPEPSIA
  6. POTASSIUM [Concomitant]
  7. OLANZAPINE [Concomitant]
     Dosage: BED TIME
  8. METOCLOPRAMIDE [Concomitant]
     Dosage: HALF TAB OF 3 MG
  9. FERROUS SULFATE [Concomitant]
  10. MAGNESIUM OXIDE [Concomitant]
  11. AMIODARONE [Concomitant]
  12. SILDENAFIL [Concomitant]

REACTIONS (1)
  - Epistaxis [Recovered/Resolved]
